FAERS Safety Report 21622090 (Version 6)
Quarter: 2023Q1

REPORT INFORMATION
  Report Type: Spontaneous
  Country: US (occurrence: US)
  Receive Date: 20221121
  Receipt Date: 20230113
  Transmission Date: 20230417
  Serious: No
  Sender: FDA-Public Use
  Company Number: US-PFIZER INC-PV202200037042

PATIENT
  Age: 65 Year
  Sex: Female
  Weight: 70.31 kg

DRUGS (2)
  1. PREMARIN [Suspect]
     Active Substance: ESTROGENS, CONJUGATED
     Indication: Urinary tract infection
     Dosage: APPLY VAGINALLY EVERY OTHER DAY (3 TIMES A WEEK)
     Route: 067
  2. PREMARIN [Suspect]
     Active Substance: ESTROGENS, CONJUGATED
     Dosage: 1 G, DAILY
     Route: 067

REACTIONS (3)
  - Hot flush [Unknown]
  - Emotional disorder [Unknown]
  - Off label use [Unknown]
